FAERS Safety Report 9669331 (Version 1)
Quarter: 2013Q4

REPORT INFORMATION
  Report Type: Spontaneous
  Country: CL (occurrence: CL)
  Receive Date: 20131105
  Receipt Date: 20131105
  Transmission Date: 20140711
  Serious: Yes (Life-Threatening, Hospitalization)
  Sender: FDA-Public Use
  Company Number: CL-JNJFOC-20131014124

PATIENT
  Age: 22 Year
  Sex: Female

DRUGS (5)
  1. RISPERIDONE [Suspect]
     Indication: PSYCHOTIC DISORDER
     Route: 048
  2. HALOPERIDOL [Suspect]
     Indication: PSYCHOTIC DISORDER
     Route: 042
  3. LORAZEPAM [Suspect]
     Indication: PSYCHOTIC DISORDER
     Route: 042
  4. CHLORPROMAZINE [Suspect]
     Indication: PSYCHOTIC DISORDER
     Route: 048
  5. ZOLPIDEM [Suspect]
     Indication: PSYCHOTIC DISORDER
     Route: 048

REACTIONS (4)
  - Leukoencephalopathy [Recovering/Resolving]
  - Cotard^s syndrome [Recovering/Resolving]
  - Catatonia [Recovering/Resolving]
  - Neuroleptic malignant syndrome [Recovering/Resolving]
